FAERS Safety Report 9046257 (Version 1)
Quarter: 2013Q1

REPORT INFORMATION
  Report Type: Spontaneous
  Country: US (occurrence: None)
  Receive Date: 20130128
  Receipt Date: 20130128
  Transmission Date: 20140127
  Serious: Yes (Hospitalization)
  Sender: FDA-Public Use
  Company Number: None

PATIENT
  Age: 83 Year
  Sex: Male
  Weight: 115.5 kg

DRUGS (1)
  1. WARFARIN [Suspect]
     Indication: DEEP VEIN THROMBOSIS
     Route: 048
     Dates: start: 20061125

REACTIONS (11)
  - Deep vein thrombosis [None]
  - Cardiac failure congestive [None]
  - Chromaturia [None]
  - Urethritis noninfective [None]
  - Nausea [None]
  - Vomiting [None]
  - Diarrhoea [None]
  - Abdominal pain [None]
  - Pulmonary hypertension [None]
  - Drug administration error [None]
  - International normalised ratio decreased [None]
